FAERS Safety Report 10098825 (Version 3)
Quarter: 2014Q3

REPORT INFORMATION
  Report Type: Spontaneous
  Country: IT (occurrence: IT)
  Receive Date: 20140423
  Receipt Date: 20140724
  Transmission Date: 20150326
  Serious: Yes (Other)
  Sender: FDA-Public Use
  Company Number: IT-BRISTOL-MYERS SQUIBB COMPANY-20650701

PATIENT
  Age: 79 Year
  Sex: Female

DRUGS (6)
  1. RAMIPRIL. [Concomitant]
     Active Substance: RAMIPRIL
     Route: 048
  2. COUMADIN [Suspect]
     Active Substance: WARFARIN SODIUM
     Indication: ATRIAL FIBRILLATION
     Dosage: 5 MG TABS
     Route: 048
     Dates: start: 20091009, end: 20140408
  3. EUTIROX [Concomitant]
     Active Substance: LEVOTHYROXINE SODIUM
     Dosage: 100 MCG TABS
     Route: 048
  4. OMEPRAZEN [Concomitant]
     Active Substance: OMEPRAZOLE
     Dosage: 20 MG CAPS
     Route: 048
  5. DILATREND [Concomitant]
     Active Substance: CARVEDILOL
     Dosage: 6.25 MG TABS
     Route: 048
  6. LASIX [Concomitant]
     Active Substance: FUROSEMIDE
     Dosage: 25 MG TABS
     Route: 048

REACTIONS (2)
  - Nasal septum perforation [Recovered/Resolved]
  - Epistaxis [Recovered/Resolved]

NARRATIVE: CASE EVENT DATE: 20140409
